FAERS Safety Report 13631661 (Version 5)
Quarter: 2018Q1

REPORT INFORMATION
  Report Type: Report from Study
  Country: US (occurrence: US)
  Receive Date: 20170608
  Receipt Date: 20180305
  Transmission Date: 20180508
  Serious: Yes (Death, Hospitalization)
  Sender: FDA-Public Use
  Company Number: US-ACTELION-A-US2016-133635

PATIENT
  Age: 75 Year
  Sex: Female
  Weight: 63.49 kg

DRUGS (8)
  1. TYVASO [Concomitant]
     Active Substance: TREPROSTINIL
  2. TRACLEER [Suspect]
     Active Substance: BOSENTAN
     Indication: PULMONARY ARTERIAL HYPERTENSION
     Dosage: 125 MG, BID
     Route: 048
  3. UPTRAVI [Suspect]
     Active Substance: SELEXIPAG
     Dosage: 800 MCG, UNK
     Route: 048
  4. TRACLEER [Suspect]
     Active Substance: BOSENTAN
     Dosage: 125 MG, QD
     Route: 048
     Dates: start: 20160211, end: 2016
  5. UPTRAVI [Suspect]
     Active Substance: SELEXIPAG
     Indication: PULMONARY ARTERIAL HYPERTENSION
     Dosage: 1000 MCG, BID
     Route: 048
     Dates: start: 20160707
  6. UPTRAVI [Suspect]
     Active Substance: SELEXIPAG
     Dosage: 4000 MCG, UNK
     Route: 048
  7. SILDENAFIL. [Concomitant]
     Active Substance: SILDENAFIL
  8. REVATIO [Concomitant]
     Active Substance: SILDENAFIL CITRATE

REACTIONS (24)
  - Pancreatic carcinoma [Fatal]
  - Blood iron decreased [Unknown]
  - Pain [Unknown]
  - Fatigue [Unknown]
  - Exercise tolerance decreased [Unknown]
  - Abdominal discomfort [Unknown]
  - Pain in jaw [Recovered/Resolved]
  - Headache [Unknown]
  - Asthenia [Unknown]
  - Malaise [Unknown]
  - Pancreatic mass [Unknown]
  - Haemoglobin decreased [Unknown]
  - Musculoskeletal chest pain [Unknown]
  - Limb discomfort [Unknown]
  - Diarrhoea [Unknown]
  - Myalgia [Unknown]
  - Accidental overdose [Unknown]
  - Seasonal allergy [Unknown]
  - Sinus disorder [Unknown]
  - Lethargy [Unknown]
  - Arthritis [Unknown]
  - Dyspnoea [Unknown]
  - Flushing [Unknown]
  - Decreased appetite [Unknown]
